FAERS Safety Report 5139929-8 (Version None)
Quarter: 2006Q4

REPORT INFORMATION
  Report Type: 
  Country: None (occurrence: None)
  Receive Date: 20061031
  Receipt Date: 20061019
  Transmission Date: 20070319
  Serious: Yes (Other)
  Sender: FDA-Public Use
  Company Number: US-ELI_LILLY_AND_COMPANY-US200610003631

PATIENT
  Age: 26 Year
  Sex: Female

DRUGS (5)
  1. ZYPREXA [Suspect]
     Indication: PSYCHOTIC DISORDER
     Dosage: 45 MG, DAILY (1/D)
     Dates: start: 19980101
  2. ZYPREXA [Suspect]
     Dosage: 7.5 MG, UNK
  3. ZYPREXA [Suspect]
     Dosage: 45 MG, DAILY (1/D)
  4. SEROQUEL [Concomitant]
     Dosage: 800 MG, UNK
  5. TEGRETOL [Concomitant]

REACTIONS (4)
  - HYPOAESTHESIA [None]
  - NEUTROPENIA [None]
  - PRESCRIBED OVERDOSE [None]
  - WHITE BLOOD CELL COUNT DECREASED [None]
